FAERS Safety Report 24364391 (Version 1)
Quarter: 2024Q3

REPORT INFORMATION
  Report Type: Report from Study
  Country: FR (occurrence: FR)
  Receive Date: 20240926
  Receipt Date: 20240926
  Transmission Date: 20241017
  Serious: Yes (Hospitalization)
  Sender: ABBVIE
  Company Number: FR-ABBVIE-5901217

PATIENT
  Age: 75 Year
  Sex: Male

DRUGS (3)
  1. CARBIDOPA\LEVODOPA [Suspect]
     Active Substance: CARBIDOPA\LEVODOPA
     Indication: Parkinson^s disease
     Dosage: CONTINUOUS FLOW RATE (DURING THE DAY) 3.2 ML/H
     Route: 050
     Dates: start: 20240827, end: 20240917
  2. CARBIDOPA\LEVODOPA [Suspect]
     Active Substance: CARBIDOPA\LEVODOPA
     Route: 050
     Dates: start: 20191220, end: 20240827
  3. CARBIDOPA\LEVODOPA [Suspect]
     Active Substance: CARBIDOPA\LEVODOPA
     Dosage: CONTINUOUS FLOW RATE 3.4 ML/HR
     Route: 050
     Dates: start: 20240917

REACTIONS (4)
  - Gastrointestinal polyp [Unknown]
  - Underdose [Not Recovered/Not Resolved]
  - Drug ineffective [Unknown]
  - On and off phenomenon [Not Recovered/Not Resolved]
